FAERS Safety Report 8491896-5 (Version None)
Quarter: 2012Q3

REPORT INFORMATION
  Report Type: 
  Country: None (occurrence: None)
  Receive Date: 20120706
  Receipt Date: 20111114
  Transmission Date: 20120928
  Serious: No
  Sender: FDA-Public Use
  Company Number: US-GLAXOSMITHKLINE-A0953039A

PATIENT
  Age: 55 Year
  Sex: Female

DRUGS (9)
  1. FLOVENT [Suspect]
     Indication: CHRONIC OBSTRUCTIVE PULMONARY DISEASE
     Dosage: 1PUFF TWICE PER DAY
     Route: 055
     Dates: start: 20111108, end: 20111113
  2. CIPROFLOXACIN HCL [Concomitant]
  3. MELATONIN [Concomitant]
  4. MULTI-VITAMINS [Concomitant]
  5. PEPCID [Concomitant]
  6. ACETAMINOPHEN [Concomitant]
  7. LEVOTHYROXINE SODIUM [Concomitant]
  8. IBUPROFEN (ADVIL) [Concomitant]
  9. TESSALON [Concomitant]

REACTIONS (6)
  - CHEST DISCOMFORT [None]
  - COUGH [None]
  - INSOMNIA [None]
  - DYSPNOEA [None]
  - ASTHENIA [None]
  - CHEST PAIN [None]
